FAERS Safety Report 9456866 (Version 1)
Quarter: 2013Q3

REPORT INFORMATION
  Report Type: Spontaneous
  Country: GB (occurrence: GB)
  Receive Date: 20130813
  Receipt Date: 20130813
  Transmission Date: 20140515
  Serious: Yes (Life-Threatening, Hospitalization)
  Sender: FDA-Public Use
  Company Number: GB-ACTAVIS-2013-14331

PATIENT
  Age: 57 Year
  Sex: 0

DRUGS (2)
  1. PARACETAMOL (UNKNOWN) [Suspect]
     Indication: POSTOPERATIVE ANALGESIA
     Dosage: 1 G, UNKNOWN
     Route: 042
     Dates: start: 201210, end: 201210
  2. PATENT BLUE V /00168401/ [Suspect]
     Indication: BIOPSY
     Dosage: 1 AMP, UNK
     Route: 058
     Dates: start: 201210, end: 201210

REACTIONS (1)
  - Anaphylactic reaction [Recovered/Resolved]
